FAERS Safety Report 6667464-4 (Version None)
Quarter: 2010Q2

REPORT INFORMATION
  Report Type: 
  Country: None (occurrence: None)
  Receive Date: 20100405
  Receipt Date: 20100316
  Transmission Date: 20101027
  Serious: Yes (Hospitalization)
  Sender: FDA-Public Use
  Company Number: US-BAYER-200936017NA

PATIENT
  Age: 76 Year
  Sex: Male

DRUGS (23)
  1. CAMPATH [Suspect]
     Indication: CHRONIC LYMPHOCYTIC LEUKAEMIA RECURRENT
     Dosage: AS USED: 30 MG
     Route: 058
     Dates: start: 20090929, end: 20091001
  2. CAMPATH [Suspect]
     Dosage: AS USED: 45 MG
     Route: 058
     Dates: start: 20091001, end: 20091001
  3. CAMPATH [Suspect]
     Dosage: AS USED: 90 MG
     Route: 058
     Dates: start: 20091001, end: 20091124
  4. RITUXIMAB [Suspect]
     Indication: CHRONIC LYMPHOCYTIC LEUKAEMIA RECURRENT
     Dosage: AS USED: 375 MG/M2
     Route: 042
     Dates: start: 20090929, end: 20091124
  5. ACYCLOVIR [Concomitant]
  6. ALLOPURINOL [Concomitant]
  7. MEPRON [Concomitant]
  8. LOTREL [Concomitant]
  9. AMLODIPINE [Concomitant]
  10. CIMETIDINE [Concomitant]
  11. COLACE [Concomitant]
  12. FUROSEMIDE [Concomitant]
  13. LASIX [Concomitant]
  14. LEVAQUIN [Concomitant]
  15. METAMUCIL-2 [Concomitant]
  16. MULTI-VITAMINS [Concomitant]
  17. NEUPOGEN [Concomitant]
  18. NORVASC [Concomitant]
  19. ORCONAZOLE [Concomitant]
  20. VALCYTE [Concomitant]
  21. OMEPRAZOLE [Concomitant]
  22. PREDNISONE TAB [Concomitant]
  23. TYLENOL-500 [Concomitant]

REACTIONS (4)
  - HYPERSENSITIVITY [None]
  - LIVER FUNCTION TEST ABNORMAL [None]
  - PNEUMONIA [None]
  - PYREXIA [None]
